FAERS Safety Report 23424324 (Version 3)
Quarter: 2024Q2

REPORT INFORMATION
  Report Type: Spontaneous
  Country: PT (occurrence: PT)
  Receive Date: 20240120
  Receipt Date: 20240402
  Transmission Date: 20240715
  Serious: Yes (Hospitalization, Other)
  Sender: FDA-Public Use
  Company Number: PT-TOWA-202305759

PATIENT
  Age: 61 Year
  Sex: Female

DRUGS (3)
  1. ROSUVASTATIN [Suspect]
     Active Substance: ROSUVASTATIN
     Indication: Metabolic syndrome
     Dosage: 20 MILLIGRAM, TITRATED UPTO 20 MG
     Route: 065
  2. ROSUVASTATIN [Suspect]
     Active Substance: ROSUVASTATIN
     Indication: Diabetic nephropathy
  3. ROSUVASTATIN [Suspect]
     Active Substance: ROSUVASTATIN
     Indication: Cardiovascular event prophylaxis

REACTIONS (3)
  - Immune-mediated myositis [Recovering/Resolving]
  - Autoimmune myositis [Recovering/Resolving]
  - Rhabdomyolysis [Recovering/Resolving]
